FAERS Safety Report 5430686-4 (Version None)
Quarter: 2007Q3

REPORT INFORMATION
  Report Type: 
  Country: None (occurrence: None)
  Receive Date: 20070830
  Receipt Date: 20070823
  Transmission Date: 20080115
  Serious: Yes (Hospitalization, Disabling, Other)
  Sender: FDA-Public Use
  Company Number: GB-JNJFOC-20060604928

PATIENT
  Sex: Male
  Weight: 65 kg

DRUGS (4)
  1. REMICADE [Suspect]
     Route: 042
  2. REMICADE [Suspect]
     Indication: ANKYLOSING SPONDYLITIS
     Route: 042
  3. OMEPRAZOLE [Concomitant]
     Indication: GASTROOESOPHAGEAL REFLUX DISEASE
     Route: 048
  4. FLUDROCORTISONE ACETATE [Concomitant]
     Indication: HYPOTENSION
     Route: 048

REACTIONS (4)
  - ANKYLOSING SPONDYLITIS [None]
  - PARESIS CRANIAL NERVE [None]
  - PYREXIA [None]
  - SECONDARY AMYLOIDOSIS [None]
